FAERS Safety Report 5415368-7 (Version None)
Quarter: 2007Q3

REPORT INFORMATION
  Report Type: 
  Country: None (occurrence: None)
  Receive Date: 20070815
  Receipt Date: 20070809
  Transmission Date: 20080115
  Serious: Yes (Hospitalization)
  Sender: FDA-Public Use
  Company Number: ES-AMGEN-US213397

PATIENT
  Sex: Female

DRUGS (1)
  1. ENBREL [Suspect]
     Indication: RHEUMATOID ARTHRITIS
     Route: 058
     Dates: start: 20060901, end: 20061119

REACTIONS (4)
  - GRANULOMA [None]
  - HERPES SIMPLEX [None]
  - LEUKOCYTOCLASTIC VASCULITIS [None]
  - PSORIASIS [None]
